FAERS Safety Report 21975360 (Version 2)
Quarter: 2023Q1

REPORT INFORMATION
  Report Type: Report from Study
  Country: AR (occurrence: AR)
  Receive Date: 20230210
  Receipt Date: 20230314
  Transmission Date: 20230418
  Serious: Yes (Hospitalization)
  Sender: FDA-Public Use
  Company Number: AR-ABBVIE-4302772

PATIENT
  Age: 55 Year
  Sex: Female

DRUGS (1)
  1. HUMIRA [Suspect]
     Active Substance: ADALIMUMAB
     Indication: Psoriatic arthropathy
     Dosage: INTERRUPTED THE TREATMENT
     Route: 058
     Dates: start: 20180530

REACTIONS (2)
  - Road traffic accident [Recovered/Resolved]
  - Joint dislocation [Recovering/Resolving]

NARRATIVE: CASE EVENT DATE: 20230206
